FAERS Safety Report 6048843-5 (Version None)
Quarter: 2009Q1

REPORT INFORMATION
  Report Type: 
  Country: None (occurrence: None)
  Receive Date: 20090123
  Receipt Date: 20090115
  Transmission Date: 20090719
  Serious: Yes (Hospitalization, Other)
  Sender: FDA-Public Use
  Company Number: GB-WYE-G02922609

PATIENT
  Sex: Male
  Weight: 88 kg

DRUGS (15)
  1. RAPAMUNE [Suspect]
     Indication: RENAL TRANSPLANT
     Dosage: 4 MG FREQUENCY UNKNOWN
     Route: 048
     Dates: start: 20080930
  2. RAPAMUNE [Suspect]
     Dosage: 2 MG FREQUENCY UNKNOWN
     Route: 048
  3. BISOPROLOL [Concomitant]
  4. SERETIDE [Concomitant]
     Route: 055
  5. COMBIVENT [Concomitant]
     Route: 055
  6. ALBUTEROL SULFATE [Concomitant]
     Route: 055
  7. MOXONIDINE [Concomitant]
     Dosage: 200 MG (FREQUENCY UNKNOWN)
  8. NOVOLOG MIX 70/30 [Concomitant]
     Dosage: 20 UNIT EVERY 1 DAY
  9. PREDNISOLONE [Concomitant]
  10. LANSOPRAZOLE [Concomitant]
  11. FRUSEMIDE [Concomitant]
  12. SIMVASTATIN [Concomitant]
  13. ASPIRIN [Concomitant]
  14. PERINDOPRIL [Concomitant]
  15. CODEINE SUL TAB [Concomitant]

REACTIONS (4)
  - BLOOD LACTATE DEHYDROGENASE INCREASED [None]
  - IMMUNOSUPPRESSANT DRUG LEVEL INCREASED [None]
  - LOWER RESPIRATORY TRACT INFECTION [None]
  - WEIGHT DECREASED [None]
